FAERS Safety Report 5821771-3 (Version None)
Quarter: 2008Q3

REPORT INFORMATION
  Report Type: 
  Country: None (occurrence: None)
  Receive Date: 20080724
  Receipt Date: 20080716
  Transmission Date: 20090109
  Serious: Yes (Other)
  Sender: FDA-Public Use
  Company Number: FR-ASTRAZENECA-2008CG01077

PATIENT
  Age: 15532 Day
  Sex: Female

DRUGS (2)
  1. NOLVADEX [Suspect]
     Indication: BREAST CANCER
     Route: 048
     Dates: start: 20080117
  2. HERCEPTIN [Suspect]
     Indication: BREAST CANCER
     Dates: start: 20070829

REACTIONS (2)
  - ANTINUCLEAR ANTIBODY POSITIVE [None]
  - GRANULOMA ANNULARE [None]
